FAERS Safety Report 25390891 (Version 19)
Quarter: 2025Q4

REPORT INFORMATION
  Report Type: Spontaneous
  Country: CA (occurrence: CA)
  Receive Date: 20250603
  Receipt Date: 20251117
  Transmission Date: 20260118
  Serious: Yes (Other)
  Sender: ASTELLAS
  Company Number: CA-PFIZER INC-PV202500038142

PATIENT
  Age: 78 Year
  Sex: Male
  Weight: 57 kg

DRUGS (24)
  1. PADCEV [Suspect]
     Active Substance: ENFORTUMAB VEDOTIN-EJFV
     Indication: Transitional cell carcinoma metastatic
     Dosage: 1.25 MG/KG (70 MG, DAY 1 AND DAY 8), POWDER FOR SOLUTION FOR INFUSION
     Route: 042
     Dates: start: 20250410
  2. PADCEV [Suspect]
     Active Substance: ENFORTUMAB VEDOTIN-EJFV
     Dosage: 70 MG DAY 1 AND DAY 8 OF 21-DAY CYCLE (CYCLIC)?POWDER FOR SOLUTION FOR INFUSION
     Route: 042
     Dates: start: 20250417
  3. PADCEV [Suspect]
     Active Substance: ENFORTUMAB VEDOTIN-EJFV
     Dosage: 71 MG DAY 1 AND DAY 8 OF 21-DAY CYCLE (CYCLIC)?POWDER FOR SOLUTION FOR INFUSION
     Route: 042
     Dates: start: 20250501
  4. PADCEV [Suspect]
     Active Substance: ENFORTUMAB VEDOTIN-EJFV
     Dosage: 71 MG DAY 1 AND DAY 8 OF 21-DAY CYCLE (CYCLIC)?POWDER FOR SOLUTION FOR INFUSION
     Route: 042
     Dates: start: 20250508
  5. PADCEV [Suspect]
     Active Substance: ENFORTUMAB VEDOTIN-EJFV
     Dosage: 71 MG DAY 1 AND DAY 8, INFUSION 5, CYCLE 3 (CYCLIC)?POWDER FOR SOLUTION FOR INFUSION,
     Route: 042
     Dates: start: 20250522
  6. PADCEV [Suspect]
     Active Substance: ENFORTUMAB VEDOTIN-EJFV
     Dosage: 71 MG DAY 1 AND DAY 8, INFUSION 5, CYCLE 3 (CYCLIC)?POWDER FOR SOLUTION FOR INFUSION,
     Route: 042
     Dates: start: 20250529
  7. PADCEV [Suspect]
     Active Substance: ENFORTUMAB VEDOTIN-EJFV
     Dosage: 71 MG FREQUENCY DAY 1 AND DAY 8 OF 21-DAY CYCLE (CYCLIC)?POWDER FOR SOLUTION FOR INFUSION,
     Route: 042
     Dates: start: 20250612
  8. PADCEV [Suspect]
     Active Substance: ENFORTUMAB VEDOTIN-EJFV
     Dosage: 71 MG DAY 1 AND DAY 8 OF 21-DAY CYCLE; CYCLE 4 (CYCLIC)?POWDER FOR SOLUTION FOR INFUSION
     Route: 042
     Dates: start: 20250619
  9. PADCEV [Suspect]
     Active Substance: ENFORTUMAB VEDOTIN-EJFV
     Dosage: 71 MG, CYCLIC, D1 AND D8, EVERY 21 DAYS?POWDER FOR SOLUTION FOR INFUSION
     Route: 042
     Dates: start: 20250703
  10. PADCEV [Suspect]
     Active Substance: ENFORTUMAB VEDOTIN-EJFV
     Dosage: 71 MG, CYCLIC, DAY (D) 1 AND D8, EVERY 21 DAYS?POWDER FOR SOLUTION FOR INFUSION,
     Route: 042
     Dates: start: 20250710
  11. PADCEV [Suspect]
     Active Substance: ENFORTUMAB VEDOTIN-EJFV
     Dosage: DAY 1 AND DAY 8 OF 21-DAY CYCLE, CYCLE 6, INFUSION 11?POWDER FOR SOLUTION FOR INFUSION
     Route: 042
     Dates: start: 20250724
  12. PADCEV [Suspect]
     Active Substance: ENFORTUMAB VEDOTIN-EJFV
     Dosage: 78 MG, CYCLIC FREQUENCY DAY 1 AND DAY 8 OF 21-DAY CYCLE?POWDER FOR SOLUTION FOR INFUSION
     Route: 042
     Dates: start: 20250731
  13. PADCEV [Suspect]
     Active Substance: ENFORTUMAB VEDOTIN-EJFV
     Dosage: 78 MG, CYCLIC FREQUENCY DAY 1 AND DAY 8 OF 21-DAY CYCLE?POWDER FOR SOLUTION FOR INFUSION
     Route: 042
     Dates: start: 20250814
  14. PADCEV [Suspect]
     Active Substance: ENFORTUMAB VEDOTIN-EJFV
     Dosage: 78 MG, CYCLIC FREQUENCY DAY 1 AND DAY 8 OF 21-DAY CYCLE 7, INFUSION 14?POWDER FOR SOLUTION FOR INFUS
     Route: 042
     Dates: start: 20250821
  15. PADCEV [Suspect]
     Active Substance: ENFORTUMAB VEDOTIN-EJFV
     Dosage: 78 MG, CYCLIC FREQUENCY DAY 1 AND DAY 8 OF 21-DAY CYCLE 8, INFUSION 15?POWDER FOR SOLUTION FOR INFUS
     Route: 042
     Dates: start: 20250904
  16. PADCEV [Suspect]
     Active Substance: ENFORTUMAB VEDOTIN-EJFV
     Dosage: 78 MG, CYCLIC, FREQUENCY: DAY 1, 8, INFUSION 16?POWDER FOR SOLUTION FOR INFUSION
     Route: 042
     Dates: start: 20250911
  17. PADCEV [Suspect]
     Active Substance: ENFORTUMAB VEDOTIN-EJFV
     Dosage: 78 MG, CYCLIC, FREQUENCY DAY 1 AND DAY 8 OF 21 CYCLE?POWDER FOR SOLUTION FOR INFUSION
     Route: 042
     Dates: start: 20250925
  18. PADCEV [Suspect]
     Active Substance: ENFORTUMAB VEDOTIN-EJFV
     Dosage: 78 MG, CYCLIC, FREQUENCY DAY 1 AND DAY 8 OF 21 CYCLE?POWDER FOR SOLUTION FOR INFUSION
     Route: 042
     Dates: start: 20251002
  19. PADCEV [Suspect]
     Active Substance: ENFORTUMAB VEDOTIN-EJFV
     Dosage: 78 MG, CYCLIC, FREQUENCY DAY 1 AND DAY 8 OF 21 DAY CYCLE?POWDER FOR SOLUTION FOR INFUSION
     Route: 042
     Dates: start: 20251016
  20. PADCEV [Suspect]
     Active Substance: ENFORTUMAB VEDOTIN-EJFV
     Dosage: DAY 1 AND DAY 8 OF 21 DAY CYCLE?POWDER FOR SOLUTION FOR INFUSION
     Route: 042
     Dates: start: 20251023
  21. PADCEV [Suspect]
     Active Substance: ENFORTUMAB VEDOTIN-EJFV
     Dosage: DAY 1 AND DAY 8 OF 21 DAY CYCLE?POWDER FOR SOLUTION FOR INFUSION
     Route: 042
     Dates: start: 20251106
  22. KEYTRUDA [Concomitant]
     Active Substance: PEMBROLIZUMAB
     Indication: Product used for unknown indication
     Dosage: UNK
     Route: 065
  23. HYDROCORTISONE [Concomitant]
     Active Substance: HYDROCORTISONE
     Indication: Product used for unknown indication
     Dosage: UNK
     Route: 065
  24. INFLUENZA VIRUS VACCINE [Concomitant]
     Active Substance: INFLUENZA VIRUS VACCINE
     Indication: Product used for unknown indication
     Dosage: SINGLE
     Route: 065
     Dates: start: 20251103, end: 20251103

REACTIONS (7)
  - Hypertension [Not Recovered/Not Resolved]
  - Hypoaesthesia [Not Recovered/Not Resolved]
  - Constipation [Unknown]
  - Weight increased [Recovered/Resolved]
  - Rash erythematous [Not Recovered/Not Resolved]
  - Rash [Not Recovered/Not Resolved]
  - Fatigue [Not Recovered/Not Resolved]

NARRATIVE: CASE EVENT DATE: 20250101
